FAERS Safety Report 6358616-1 (Version None)
Quarter: 2009Q3

REPORT INFORMATION
  Report Type: 
  Country: None (occurrence: None)
  Receive Date: 20090914
  Receipt Date: 20090901
  Transmission Date: 20100115
  Serious: Yes (Hospitalization)
  Sender: FDA-Public Use
  Company Number: 2009AL004020

PATIENT
  Sex: Male

DRUGS (29)
  1. DIGOXIN [Suspect]
     Dosage: 0.0625 MG. DAILY
     Dates: start: 20080502
  2. DIGOXIN [Suspect]
     Dosage: 0.25 MG, ONCE DAILY
     Dates: start: 20071005, end: 20080502
  3. CARDIZEM [Concomitant]
  4. ATROPINE [Concomitant]
  5. AVANDIA [Concomitant]
  6. UROXATRAL [Concomitant]
  7. ALTACE [Concomitant]
  8. CRESTOR [Concomitant]
  9. TRICOR [Concomitant]
  10. GLUCOPHAGE [Concomitant]
  11. K-DUR [Concomitant]
  12. LASIX [Concomitant]
  13. ASPIRIN [Concomitant]
  14. MULTI-VITAMIN [Concomitant]
  15. LANTUS [Concomitant]
  16. FLECAINIDE ACETATE [Concomitant]
  17. COUMADIN [Concomitant]
  18. PERCOCET [Concomitant]
  19. ASIPIRIN [Concomitant]
  20. NIACIN [Concomitant]
  21. AVANDARYL [Concomitant]
  22. ALLI [Concomitant]
  23. LOVAZA [Concomitant]
  24. CARTIA XT [Concomitant]
  25. TRAMADOL [Concomitant]
  26. ZOLPIDEM [Concomitant]
  27. DIOVAN [Concomitant]
  28. SATOLOL [Concomitant]
  29. POTASSIUM CHLORIDE [Concomitant]

REACTIONS (19)
  - ACTIVATED PARTIAL THROMBOPLASTIN TIME PROLONGED [None]
  - CARDIOACTIVE DRUG LEVEL BELOW THERAPEUTIC [None]
  - CHEST X-RAY ABNORMAL [None]
  - CHOLELITHIASIS [None]
  - ECONOMIC PROBLEM [None]
  - ELECTROCARDIOGRAM T WAVE INVERSION [None]
  - HEADACHE [None]
  - HEPATIC STEATOSIS [None]
  - HYPOGLYCAEMIA [None]
  - LEFT ATRIAL DILATATION [None]
  - LUNG NEOPLASM [None]
  - MULTIPLE INJURIES [None]
  - OEDEMA PERIPHERAL [None]
  - POSTNASAL DRIP [None]
  - SICK SINUS SYNDROME [None]
  - SURGERY [None]
  - UNEVALUABLE EVENT [None]
  - VENTRICULAR EXTRASYSTOLES [None]
  - WEIGHT DECREASED [None]
